FAERS Safety Report 8940386 (Version 4)
Quarter: 2014Q4

REPORT INFORMATION
  Report Type: Spontaneous
  Country: US (occurrence: US)
  Receive Date: 20121203
  Receipt Date: 20141104
  Transmission Date: 20150529
  Serious: Yes (Hospitalization, Disabling)
  Sender: FDA-Public Use
  Company Number: US-BAYER-2012-124958

PATIENT
  Age: 26 Year
  Sex: Female
  Weight: 54 kg

DRUGS (10)
  1. CLARAVIS [Concomitant]
     Active Substance: ISOTRETINOIN
     Indication: ACNE
  2. YAZ [Suspect]
     Active Substance: DROSPIRENONE\ETHINYL ESTRADIOL
     Indication: ACNE
     Dosage: UNK
     Dates: start: 2007, end: 20090918
  3. YAZ [Suspect]
     Active Substance: DROSPIRENONE\ETHINYL ESTRADIOL
     Indication: CONTRACEPTION
     Dosage: UNK
     Dates: start: 2006, end: 2009
  4. SPIRONOLACTONE. [Concomitant]
     Active Substance: SPIRONOLACTONE
     Indication: ACNE
  5. SODIUM SULFACETAMIDE [Concomitant]
     Active Substance: SULFACETAMIDE SODIUM
     Dosage: 10-5%
  6. TRI-LUMA [Concomitant]
     Active Substance: FLUOCINOLONE ACETONIDE\HYDROQUINONE\TRETINOIN
  7. YASMIN [Suspect]
     Active Substance: DROSPIRENONE\ETHINYL ESTRADIOL
     Indication: ACNE
     Dosage: UNK
     Dates: start: 2007, end: 20090918
  8. YASMIN [Suspect]
     Active Substance: DROSPIRENONE\ETHINYL ESTRADIOL
     Indication: CONTRACEPTION
     Dosage: UNK
     Dates: start: 2005, end: 2009
  9. CLARINEX [Concomitant]
     Active Substance: DESLORATADINE
  10. ACCUTANE [Concomitant]
     Active Substance: ISOTRETINOIN

REACTIONS (9)
  - Transient ischaemic attack [None]
  - Anxiety [None]
  - Venous thrombosis [None]
  - Life expectancy shortened [None]
  - Deformity [None]
  - Pain [None]
  - Cerebrovascular accident [None]
  - Anhedonia [None]
  - Injury [None]

NARRATIVE: CASE EVENT DATE: 20090917
